FAERS Safety Report 7014416-0 (Version None)
Quarter: 2010Q3

REPORT INFORMATION
  Report Type: 
  Country: None (occurrence: None)
  Receive Date: 20100927
  Receipt Date: 20100923
  Transmission Date: 20110219
  Serious: No
  Sender: FDA-Public Use
  Company Number: CL-SANOFI-AVENTIS-2010SA035361

PATIENT
  Age: 38 Year
  Sex: Female
  Weight: 50 kg

DRUGS (3)
  1. LEFLUNOMIDE [Suspect]
     Indication: RHEUMATOID ARTHRITIS
     Route: 048
     Dates: start: 20090101, end: 20100616
  2. CALCIUM [Concomitant]
     Indication: PREGNANCY
     Route: 048
     Dates: start: 20100616
  3. FOLIC ACID [Concomitant]
     Indication: PREGNANCY
     Route: 048
     Dates: start: 20100616

REACTIONS (1)
  - DRUG EXPOSURE DURING PREGNANCY [None]
